FAERS Safety Report 4654710-1 (Version None)
Quarter: 2005Q2

REPORT INFORMATION
  Report Type: 
  Country: None (occurrence: None)
  Receive Date: 20050506
  Receipt Date: 20050428
  Transmission Date: 20051028
  Serious: Yes (Hospitalization)
  Sender: FDA-Public Use
  Company Number: 200511489FR

PATIENT
  Age: 90 Year
  Sex: Female

DRUGS (5)
  1. LASILIX [Suspect]
     Indication: ESSENTIAL HYPERTENSION
     Route: 048
     Dates: start: 20040815, end: 20050105
  2. FELDENE [Suspect]
     Indication: PAIN
     Route: 048
     Dates: start: 20040815, end: 20050101
  3. MOCLAMINE [Suspect]
     Indication: DEPRESSION
     Route: 048
     Dates: start: 20040815, end: 20050101
  4. DAFALGAN [Concomitant]
     Indication: PAIN
     Route: 048
  5. FORLAX [Concomitant]
     Indication: CONSTIPATION
     Route: 048

REACTIONS (1)
  - PEMPHIGOID [None]
